FAERS Safety Report 23019984 (Version 1)
Quarter: 2023Q4

REPORT INFORMATION
  Report Type: Report from Study
  Country: US (occurrence: US)
  Receive Date: 20231003
  Receipt Date: 20231003
  Transmission Date: 20240109
  Serious: Yes (Hospitalization, Other)
  Sender: FDA-Public Use
  Company Number: US-ABBVIE-5430991

PATIENT
  Sex: Female

DRUGS (1)
  1. RINVOQ [Suspect]
     Active Substance: UPADACITINIB
     Indication: Rheumatoid arthritis
     Route: 048
     Dates: start: 20230614

REACTIONS (3)
  - Spinal cord compression [Recovered/Resolved]
  - Intestinal obstruction [Unknown]
  - Spinal fracture [Recovered/Resolved]

NARRATIVE: CASE EVENT DATE: 20230101
